FAERS Safety Report 8491387-1 (Version None)
Quarter: 2012Q3

REPORT INFORMATION
  Report Type: 
  Country: None (occurrence: None)
  Receive Date: 20120706
  Receipt Date: 20120703
  Transmission Date: 20120928
  Serious: Yes (Life-Threatening, Hospitalization)
  Sender: FDA-Public Use
  Company Number: US-BAYER-2012-066814

PATIENT

DRUGS (1)
  1. GADAVIST [Suspect]

REACTIONS (5)
  - THROAT TIGHTNESS [None]
  - EYE SWELLING [None]
  - URTICARIA [None]
  - SWELLING [None]
  - PRURITUS [None]
